FAERS Safety Report 23825049 (Version 1)
Quarter: 2024Q2

REPORT INFORMATION
  Report Type: Spontaneous
  Country: US (occurrence: US)
  Receive Date: 20240507
  Receipt Date: 20240507
  Transmission Date: 20240716
  Serious: Yes (Hospitalization)
  Sender: FDA-Public Use
  Company Number: US-MYLANLABS-2024M1040534

PATIENT
  Age: 61 Year
  Sex: Female

DRUGS (6)
  1. KETOCONAZOLE [Suspect]
     Active Substance: KETOCONAZOLE
     Indication: Cushing^s syndrome
     Dosage: UNK
     Route: 065
  2. KETOCONAZOLE [Suspect]
     Active Substance: KETOCONAZOLE
     Dosage: UNK, TITRATED UP
     Route: 065
  3. RECLAST [Concomitant]
     Active Substance: ZOLEDRONIC ACID
     Indication: Spinal compression fracture
     Dosage: UNK
     Route: 065
  4. RECLAST [Concomitant]
     Active Substance: ZOLEDRONIC ACID
     Indication: Rib fracture
  5. RECLAST [Concomitant]
     Active Substance: ZOLEDRONIC ACID
     Indication: Pelvic fracture
  6. RECLAST [Concomitant]
     Active Substance: ZOLEDRONIC ACID
     Indication: Stress fracture

REACTIONS (2)
  - Drug ineffective for unapproved indication [Unknown]
  - Off label use [Unknown]
